FAERS Safety Report 8590745-4 (Version None)
Quarter: 2012Q3

REPORT INFORMATION
  Report Type: 
  Country: None (occurrence: None)
  Receive Date: 20120813
  Receipt Date: 20120808
  Transmission Date: 20120928
  Serious: Yes (Hospitalization, Other)
  Sender: FDA-Public Use
  Company Number: JP-VERTEX PHARMACEUTICALS INC.-AE-2012-009358

PATIENT
  Age: 65 Year
  Sex: Female

DRUGS (22)
  1. TELAVIC [Suspect]
     Indication: HEPATITIS C
     Route: 048
     Dates: start: 20120501, end: 20120529
  2. ESTRIEL [Concomitant]
     Route: 048
  3. ZETIA [Concomitant]
     Route: 048
  4. POTASSIUM CHLORIDE [Concomitant]
     Route: 051
     Dates: start: 20120505, end: 20120508
  5. MAGMITT [Concomitant]
     Route: 048
  6. PEGINTERFERON ALFA-2B [Concomitant]
     Indication: HEPATITIS C
     Route: 058
     Dates: start: 20120502, end: 20120529
  7. LOSARTAN POTASSIUM [Concomitant]
     Route: 048
  8. LANSOPRAZOLE [Concomitant]
     Route: 048
  9. URSO 250 [Concomitant]
     Route: 048
  10. RIBAVIRIN [Concomitant]
     Indication: HEPATITIS C
     Route: 048
     Dates: start: 20120502, end: 20120507
  11. ALLEGRA [Concomitant]
     Route: 048
     Dates: start: 20120504
  12. ANTEBATE: OINTMENT [Concomitant]
     Route: 061
  13. POTASSIUM CHLORIDE [Concomitant]
     Route: 051
     Dates: start: 20120508, end: 20120529
  14. GASMOTIN [Concomitant]
     Route: 048
     Dates: start: 20120605
  15. RIBAVIRIN [Concomitant]
     Route: 048
     Dates: start: 20120522, end: 20120529
  16. ALLOPURINOL [Concomitant]
     Route: 048
     Dates: start: 20120508
  17. ALDACTONE [Concomitant]
     Route: 048
     Dates: start: 20120605
  18. RIBAVIRIN [Concomitant]
     Route: 048
     Dates: start: 20120508, end: 20120521
  19. LACTEC [Concomitant]
     Route: 051
     Dates: start: 20120508, end: 20120529
  20. GASMOTIN [Concomitant]
     Route: 048
     Dates: start: 20120724
  21. LENDORMIN [Concomitant]
     Route: 048
  22. LOXONIN [Concomitant]
     Route: 048

REACTIONS (3)
  - HERPES ZOSTER [None]
  - DECREASED APPETITE [None]
  - RENAL IMPAIRMENT [None]
